FAERS Safety Report 6672102-0 (Version None)
Quarter: 2010Q2

REPORT INFORMATION
  Report Type: 
  Country: None (occurrence: None)
  Receive Date: 20100407
  Receipt Date: 20100407
  Transmission Date: 20101027
  Serious: Yes (Death, Life-Threatening, Hospitalization)
  Sender: FDA-Public Use
  Company Number: None

PATIENT
  Sex: Male
  Weight: 78.8 kg

DRUGS (4)
  1. ONCASPER -PEGASPARAGINASE- 750 UI/5ML SINGLE-USE VIAL SIGMA TAU PHARMA [Suspect]
     Indication: ACUTE LYMPHOCYTIC LEUKAEMIA
     Dosage: 2,500 IU/KG ONCE PER CYCLE IV DRIP
     Route: 041
     Dates: start: 20091113, end: 20091113
  2. CALCIUM [Concomitant]
  3. CIPROFLOXACIN [Concomitant]
  4. DEXAMETHASONE [Concomitant]

REACTIONS (8)
  - ANOXIC ENCEPHALOPATHY [None]
  - ARTERIOSCLEROSIS CORONARY ARTERY [None]
  - CONVULSION [None]
  - FALL [None]
  - FAT NECROSIS [None]
  - MYOCARDIAL FIBROSIS [None]
  - PULMONARY HAEMORRHAGE [None]
  - SUBARACHNOID HAEMORRHAGE [None]
